FAERS Safety Report 5692574-8 (Version None)
Quarter: 2008Q2

REPORT INFORMATION
  Report Type: 
  Country: None (occurrence: None)
  Receive Date: 20080401
  Receipt Date: 20080320
  Transmission Date: 20081010
  Serious: Yes (Other)
  Sender: FDA-Public Use
  Company Number: 2007BI026718

PATIENT
  Age: 51 Year
  Sex: Male

DRUGS (7)
  1. TYSABRI [Suspect]
     Indication: MULTIPLE SCLEROSIS
     Dosage: IV
     Dates: start: 20061214
  2. PROVIGIL [Concomitant]
  3. KLONOPIN [Concomitant]
  4. ADVIL PM [Concomitant]
  5. RITALIN [Concomitant]
  6. CYMBALTA [Concomitant]
  7. LYRICA [Concomitant]

REACTIONS (19)
  - ARTHRALGIA [None]
  - CHRONIC LYMPHOCYTIC LEUKAEMIA [None]
  - COGNITIVE DISORDER [None]
  - DEPRESSION [None]
  - DYSAESTHESIA [None]
  - ERECTILE DYSFUNCTION [None]
  - FALL [None]
  - FATIGUE [None]
  - GAIT DISTURBANCE [None]
  - HEADACHE [None]
  - INFLUENZA LIKE ILLNESS [None]
  - LYMPHOPLASMACYTOID LYMPHOMA/IMMUNOCYTOMA [None]
  - MUSCLE SPASTICITY [None]
  - MYOCLONUS [None]
  - PARAPARESIS [None]
  - PERONEAL NERVE PALSY [None]
  - TESTICULAR PAIN [None]
  - TREMOR [None]
  - URINARY TRACT INFECTION [None]
